FAERS Safety Report 9373173 (Version 3)
Quarter: 2013Q3

REPORT INFORMATION
  Report Type: Report from Study
  Country: US (occurrence: US)
  Receive Date: 20130627
  Receipt Date: 20130814
  Transmission Date: 20140515
  Serious: Yes (Death, Congenital Anomaly)
  Sender: FDA-Public Use
  Company Number: US-ABBOTT-13P-163-1110232-00

PATIENT
  Sex: 0

DRUGS (3)
  1. NORVIR [Suspect]
     Indication: MATERNAL EXPOSURE TIMING UNSPECIFIED
     Route: 064
  2. TRUVADA [Suspect]
     Indication: MATERNAL EXPOSURE TIMING UNSPECIFIED
     Route: 064
  3. PREZISTA [Suspect]
     Indication: MATERNAL EXPOSURE TIMING UNSPECIFIED
     Route: 064

REACTIONS (3)
  - Abortion induced [Fatal]
  - Alpha 1 foetoprotein abnormal [Unknown]
  - Foetal exposure during pregnancy [Unknown]
